FAERS Safety Report 9689118 (Version 1)
Quarter: 2013Q4

REPORT INFORMATION
  Report Type: Spontaneous
  Country: IT (occurrence: IT)
  Receive Date: 20131114
  Receipt Date: 20131114
  Transmission Date: 20140711
  Serious: Yes (Hospitalization)
  Sender: FDA-Public Use
  Company Number: IT-TEVA-444139ISR

PATIENT
  Age: 68 Year
  Sex: Female

DRUGS (6)
  1. CARBOLITHIUM TEVA ITALIA 300 MG [Suspect]
     Indication: BIPOLAR DISORDER
     Dosage: 600 MILLIGRAM DAILY;
     Route: 048
     Dates: start: 20130919, end: 20131020
  2. VALPROIC ACID [Suspect]
     Indication: BIPOLAR DISORDER
     Dosage: 1 GRAM DAILY;
     Route: 048
     Dates: end: 20131021
  3. SEROQUEL 400 MG [Suspect]
     Indication: BIPOLAR DISORDER
     Dosage: 400 MILLIGRAM DAILY;
     Route: 048
     Dates: end: 20131020
  4. VALDORM 30 MG [Suspect]
     Indication: BIPOLAR DISORDER
     Dosage: 30 MILLIGRAM DAILY;
     Route: 048
     Dates: end: 20131020
  5. LISINOPRIL [Concomitant]
     Indication: HYPERTENSION
     Dosage: 10 MILLIGRAM DAILY;
     Route: 048
     Dates: end: 20131030
  6. EUTIROX 50 MCG [Concomitant]
     Indication: HYPOTHYROIDISM
     Dosage: 50 MICROGRAM DAILY;
     Route: 048
     Dates: start: 20131030

REACTIONS (3)
  - Toxicity to various agents [Recovered/Resolved]
  - Sopor [Recovered/Resolved]
  - Confusional state [Recovered/Resolved]
